FAERS Safety Report 6159059-6 (Version None)
Quarter: 2009Q2

REPORT INFORMATION
  Report Type: 
  Country: None (occurrence: None)
  Receive Date: 20090414
  Receipt Date: 20090403
  Transmission Date: 20091009
  Serious: Yes (Other)
  Sender: FDA-Public Use
  Company Number: 230052M09GBR

PATIENT
  Sex: Female

DRUGS (1)
  1. REBIF [Suspect]
     Dosage: 44 MCG
     Dates: start: 20070214

REACTIONS (2)
  - HEPATIC INFECTION [None]
  - LIVER INJURY [None]
